FAERS Safety Report 9312906 (Version 1)
Quarter: 2013Q2

REPORT INFORMATION
  Report Type: Spontaneous
  Country: DE (occurrence: DE)
  Receive Date: 20130528
  Receipt Date: 20130528
  Transmission Date: 20140414
  Serious: Yes (Hospitalization, Other)
  Sender: FDA-Public Use
  Company Number: DE-ALEXION-A201301122

PATIENT
  Age: 42 Year
  Sex: Male

DRUGS (13)
  1. SOLIRIS 300MG [Suspect]
     Indication: HAEMOLYTIC URAEMIC SYNDROME
     Dosage: 900 MG, QW
     Route: 042
     Dates: start: 20120726, end: 20120829
  2. SOLIRIS 300MG [Suspect]
     Dosage: 1200 MG, Q2W
     Route: 042
     Dates: start: 20120829
  3. L-THYROXIN [Concomitant]
     Indication: THYROIDECTOMY
     Dosage: 100 MCG, UNK
     Route: 048
  4. METOPROLOL [Concomitant]
     Indication: HYPERTENSION
     Dosage: 2 X 95 MG, UNK
     Route: 048
  5. DIHYDRALAZINE [Concomitant]
     Indication: HYPERTENSION
     Dosage: 3 X 25 MG, UNK
     Route: 048
  6. AMLODIPINE [Concomitant]
     Indication: HYPERTENSION
     Dosage: 2 X 5 MG, UNK
     Route: 048
  7. TORASEMIDE [Concomitant]
     Indication: DIURETIC THERAPY
     Dosage: 1 X 20 MG, UNK
     Route: 048
  8. PANTOPRAZOL [Concomitant]
     Indication: DYSPEPSIA
     Dosage: 2 X 40 MG, UNK
     Route: 048
  9. CALCIUM ACETATE [Concomitant]
     Indication: BLOOD PHOSPHORUS
     Dosage: 3 X 950 MG, UNK
     Route: 048
  10. SODIUM BICARBONATE [Concomitant]
     Indication: PRODUCT USED FOR UNKNOWN INDICATION
     Dosage: 2 X 1 G, UNK
     Route: 048
  11. LANTHANUM CARBONATE [Concomitant]
     Indication: BLOOD PHOSPHORUS
     Dosage: 3 X 750 MG, UNK
     Route: 048
  12. EPOETIN [Concomitant]
     Indication: NEPHROGENIC ANAEMIA
     Dosage: 3 X 4,000 IE, UNK
     Route: 042
  13. FERROUS GLUCONATE [Concomitant]
     Indication: NEPHROGENIC ANAEMIA
     Dosage: 1 X 400 MG, UNK
     Route: 042

REACTIONS (8)
  - Intestinal infarction [Recovered/Resolved]
  - Meningoencephalitis herpetic [Unknown]
  - VIIth nerve paralysis [Unknown]
  - Vomiting [Recovered/Resolved]
  - Blood lactate dehydrogenase increased [Unknown]
  - Platelet count decreased [Unknown]
  - Weight decreased [Unknown]
  - Diarrhoea [Recovered/Resolved]
